FAERS Safety Report 9155172 (Version 1)
Quarter: 2013Q1

REPORT INFORMATION
  Report Type: Spontaneous
  Country: UA (occurrence: None)
  Receive Date: 20130208
  Receipt Date: 20130208
  Transmission Date: 20140127
  Serious: No
  Sender: FDA-Public Use
  Company Number: 1301UKR011834

PATIENT
  Age: 40 Year
  Sex: Male

DRUGS (1)
  1. CEDAX (CEFTIBUTEN) CAPSULE, 400MG [Suspect]
     Indication: TRACHEOBRONCHITIS
     Route: 048

REACTIONS (1)
  - Drug ineffective [None]
